FAERS Safety Report 4952471-X (Version None)
Quarter: 2006Q1

REPORT INFORMATION
  Report Type: 
  Country: None (occurrence: None)
  Receive Date: 20060323
  Receipt Date: 20050920
  Transmission Date: 20060701
  Serious: Yes (Death, Hospitalization, Other)
  Sender: FDA-Public Use
  Company Number: US-MERCK-0509USA02977

PATIENT
  Age: 70 Year
  Sex: Male
  Weight: 90 kg

DRUGS (17)
  1. VIOXX [Suspect]
     Indication: BACK PAIN
     Route: 048
     Dates: start: 20001005, end: 20030728
  2. BIAXIN [Concomitant]
     Route: 065
  3. ANDRODERM [Concomitant]
     Route: 065
  4. COMBIVENT [Concomitant]
     Route: 065
  5. PREDNISONE [Concomitant]
     Route: 065
  6. HYDROCODONE BITARTRATE [Concomitant]
     Route: 065
  7. MYSOLINE [Concomitant]
     Route: 065
  8. AMITRIPTYLINE HYDROCHLORIDE [Concomitant]
     Route: 065
  9. CEPHALEXIN [Concomitant]
     Route: 065
  10. SEREVENT [Concomitant]
     Route: 065
  11. AMBIEN [Concomitant]
     Route: 065
  12. ACETAMINOPHEN AND PROPOXYPHENE NAPSYLATE [Concomitant]
     Route: 065
  13. AEROBID [Concomitant]
     Route: 065
  14. COSAMIN [Concomitant]
     Route: 065
  15. NEURONTIN [Concomitant]
     Route: 065
  16. FELODIPINE [Concomitant]
     Route: 065
  17. ASPIRIN [Concomitant]
     Route: 065

REACTIONS (28)
  - ADVERSE DRUG REACTION [None]
  - ANXIETY [None]
  - ARRHYTHMIA [None]
  - ARTERIOSCLEROSIS [None]
  - ARTHRITIS [None]
  - ASTHMA [None]
  - BRONCHIECTASIS [None]
  - CARDIAC ARREST [None]
  - CARDIAC FAILURE [None]
  - CAROTID ARTERY STENOSIS [None]
  - CHOLELITHIASIS [None]
  - CONVULSION [None]
  - DEMENTIA [None]
  - DIZZINESS [None]
  - DYSPNOEA [None]
  - ESSENTIAL TREMOR [None]
  - HYPOXIA [None]
  - JOINT INJURY [None]
  - MANIA [None]
  - MITRAL VALVE CALCIFICATION [None]
  - MYOCARDIAL INFARCTION [None]
  - NEUROPATHY PERIPHERAL [None]
  - RESPIRATORY ARREST [None]
  - SICK SINUS SYNDROME [None]
  - SLEEP APNOEA SYNDROME [None]
  - STRABISMUS [None]
  - TRANSIENT ISCHAEMIC ATTACK [None]
  - TRICUSPID VALVE INCOMPETENCE [None]
